FAERS Safety Report 5560379-4 (Version None)
Quarter: 2007Q4

REPORT INFORMATION
  Report Type: 
  Country: None (occurrence: None)
  Receive Date: 20071214
  Receipt Date: 20071107
  Transmission Date: 20080405
  Serious: No
  Sender: FDA-Public Use
  Company Number: US-ABBOTT-07P-163-0424024-00

PATIENT
  Sex: Female

DRUGS (4)
  1. HUMIRA [Suspect]
     Indication: RHEUMATOID ARTHRITIS
     Route: 058
     Dates: start: 20070801, end: 20071106
  2. NASAL SPRAY [Concomitant]
     Indication: DRUG USE FOR UNKNOWN INDICATION
  3. ELEVEN OTHER UNREPORTED MEDICATIONS [Concomitant]
     Indication: HYPERSENSITIVITY
  4. ELEVEN OTHER UNREPORTED MEDICATIONS [Concomitant]
     Indication: HYPERTENSION

REACTIONS (2)
  - PULMONARY CONGESTION [None]
  - SINUSITIS [None]
